FAERS Safety Report 10869559 (Version 1)
Quarter: 2015Q1

REPORT INFORMATION
  Report Type: Spontaneous
  Country: US (occurrence: US)
  Receive Date: 20150226
  Receipt Date: 20150226
  Transmission Date: 20150721
  Serious: No
  Sender: FDA-Public Use
  Company Number: US-GLAXOSMITHKLINE-US2015GSK009469

PATIENT
  Age: 76 Year
  Sex: Male
  Weight: 78.8 kg

DRUGS (11)
  1. VOTRIENT [Suspect]
     Active Substance: PAZOPANIB HYDROCHLORIDE
     Indication: RENAL CANCER
     Dosage: 800 MG, QD
     Route: 048
     Dates: start: 20150102
  2. WARFARIN [Concomitant]
     Active Substance: WARFARIN
  3. VITAMIN D2 [Concomitant]
     Active Substance: ERGOCALCIFEROL
  4. LASIX [Concomitant]
     Active Substance: FUROSEMIDE
  5. TAMSULOSIN [Concomitant]
     Active Substance: TAMSULOSIN
  6. ASPIRIN. [Concomitant]
     Active Substance: ASPIRIN
  7. NITROGLYCERIN. [Concomitant]
     Active Substance: NITROGLYCERIN
  8. MAGNESIUM OXIDE. [Concomitant]
     Active Substance: MAGNESIUM OXIDE
  9. COENZYME Q10 [Concomitant]
     Active Substance: UBIDECARENONE
  10. METOPROLOL [Concomitant]
     Active Substance: METOPROLOL
  11. ISOSORBIDE [Concomitant]
     Active Substance: ISOSORBIDE

REACTIONS (2)
  - Back pain [Unknown]
  - Anaemia [Unknown]

NARRATIVE: CASE EVENT DATE: 20150109
